FAERS Safety Report 4615893-2 (Version None)
Quarter: 2005Q1

REPORT INFORMATION
  Report Type: 
  Country: None (occurrence: None)
  Receive Date: 20050318
  Receipt Date: 20050307
  Transmission Date: 20050727
  Serious: Yes (Hospitalization)
  Sender: FDA-Public Use
  Company Number: 2005CG00010

PATIENT
  Age: 81 Year
  Sex: Female

DRUGS (2)
  1. MOPRAL [Suspect]
     Dosage: 20 MG BID PO
     Route: 048
     Dates: start: 20041130, end: 20041210
  2. PRAVASTATIN [Suspect]
     Dosage: 20 MG QD PO
     Route: 048
     Dates: start: 20040715, end: 20041210

REACTIONS (3)
  - ACUTE GENERALISED EXANTHEMATOUS PUSTULOSIS [None]
  - CANDIDIASIS [None]
  - DISEASE RECURRENCE [None]
